FAERS Safety Report 18170923 (Version 2)
Quarter: 2020Q3

REPORT INFORMATION
  Report Type: Report from Study
  Country: BD (occurrence: BD)
  Receive Date: 20200819
  Receipt Date: 20200825
  Transmission Date: 20201103
  Serious: Yes (Death, Hospitalization)
  Sender: FDA-Public Use
  Company Number: NVSC2020BD228541

PATIENT
  Age: 80 Year
  Sex: Female

DRUGS (1)
  1. ACLASTA [Suspect]
     Active Substance: ZOLEDRONIC ACID
     Indication: OSTEOPOROSIS
     Dosage: 1 DF (ONCE IN YEAR)
     Route: 065
     Dates: start: 2010

REACTIONS (3)
  - Diarrhoea [Fatal]
  - Dehydration [Fatal]
  - Electrolyte imbalance [Fatal]

NARRATIVE: CASE EVENT DATE: 20190905
